FAERS Safety Report 11745392 (Version 1)
Quarter: 2015Q4

REPORT INFORMATION
  Report Type: Spontaneous
  Country: GB (occurrence: GB)
  Receive Date: 20151117
  Receipt Date: 20151117
  Transmission Date: 20160304
  Serious: Yes (Life-Threatening, Other)
  Sender: FDA-Public Use
  Company Number: GB-DRREDDYS-USA/UKI/15/0054045

PATIENT
  Age: 60 Year
  Sex: Female

DRUGS (5)
  1. ACICLOVIR [Concomitant]
     Active Substance: ACYCLOVIR
     Indication: PROPHYLAXIS
     Route: 065
  2. GRANULOCYTE COLONY STIMULATING FACTOR [Concomitant]
     Active Substance: GRANULOCYTE COLONY-STIMULATING FACTOR NOS
     Indication: MYCOSIS FUNGOIDES STAGE III
     Route: 065
  3. GEMCITABINE [Suspect]
     Active Substance: GEMCITABINE\GEMCITABINE HYDROCHLORIDE
     Indication: MYCOSIS FUNGOIDES STAGE III
     Route: 065
  4. FLUCONAZOLE. [Concomitant]
     Active Substance: FLUCONAZOLE
     Indication: PROPHYLAXIS
     Route: 065
  5. COTRIMOXAZOLE [Concomitant]
     Active Substance: SULFAMETHOXAZOLE\TRIMETHOPRIM
     Indication: PROPHYLAXIS
     Route: 065

REACTIONS (7)
  - Thrombocytosis [Unknown]
  - Decreased appetite [Unknown]
  - Musculoskeletal discomfort [Unknown]
  - Vasculitis [Recovered/Resolved]
  - Malaise [Unknown]
  - Pyrexia [Unknown]
  - Anaemia [Unknown]
